FAERS Safety Report 8796057 (Version 2)
Quarter: 2012Q4

REPORT INFORMATION
  Report Type: 
  Country: FR (occurrence: FR)
  Receive Date: 20120919
  Receipt Date: 20121019
  Transmission Date: 20130627
  Serious: Yes (Other)
  Sender: FDA-Public Use
  Company Number: FR-PFIZER INC-2012226566

PATIENT
  Age: 52 Year
  Sex: Female
  Weight: 78 kg

DRUGS (2)
  1. CELEBREX [Suspect]
     Indication: INTERVERTEBRAL DISC PROTRUSION
     Dosage: 1 DF, 1x/day
     Route: 048
     Dates: start: 20120705, end: 20120706
  2. CELEBREX [Suspect]
     Indication: BACK PAIN

REACTIONS (2)
  - Transient ischaemic attack [Recovered/Resolved]
  - Hemianopia [Recovered/Resolved]
